FAERS Safety Report 13612491 (Version 2)
Quarter: 2017Q3

REPORT INFORMATION
  Report Type: Spontaneous
  Country: GB (occurrence: GB)
  Receive Date: 20170605
  Receipt Date: 20170706
  Transmission Date: 20171127
  Serious: Yes (Hospitalization)
  Sender: FDA-Public Use
  Company Number: GB-ABBVIE-17K-167-1997231-00

PATIENT
  Age: 51 Year
  Sex: Female
  Weight: 70.37 kg

DRUGS (2)
  1. DUODOPA [Suspect]
     Active Substance: CARBIDOPA\LEVODOPA
     Indication: PARKINSON^S DISEASE
     Dosage: 72MG/H, CONTINUOUS 20 HOURS PER DAY.
     Route: 050
     Dates: start: 201703, end: 20170526
  2. CITALOPRAM [Concomitant]
     Active Substance: CITALOPRAM HYDROBROMIDE
     Indication: ANXIETY
     Route: 048

REACTIONS (2)
  - Anxiety [Unknown]
  - Chronic hepatic failure [Recovering/Resolving]

NARRATIVE: CASE EVENT DATE: 2017
